FAERS Safety Report 5746540-4 (Version None)
Quarter: 2008Q2

REPORT INFORMATION
  Report Type: 
  Country: None (occurrence: None)
  Receive Date: 20080522
  Receipt Date: 20071129
  Transmission Date: 20081010
  Serious: Yes (Death, Hospitalization)
  Sender: FDA-Public Use
  Company Number: US-BRISTOL-MYERS SQUIBB COMPANY-13998869

PATIENT
  Age: 62 Year
  Sex: Male

DRUGS (10)
  1. CYTOXAN [Suspect]
     Indication: MULTIPLE MYELOMA
  2. REVLIMID [Suspect]
     Indication: MULTIPLE MYELOMA
     Dosage: 15MG/DAY ON 1-14 DAYS + 22-28 DAYS. ADDTL LOT#428564. 10MG/DAY FROM 14-MAY-2007-WITHDRAWN.
     Route: 048
     Dates: start: 20070124
  3. ACYCLOVIR SODIUM [Concomitant]
     Dates: start: 20070319
  4. BACTRIM [Concomitant]
     Dates: start: 20070319
  5. DEXAMETHASONE TAB [Concomitant]
     Dates: start: 20070319
  6. ASPIRIN [Concomitant]
     Dates: start: 20070319
  7. VELCADE [Concomitant]
     Dates: start: 20070319
  8. GABAPENTIN [Concomitant]
     Dates: start: 20070319
  9. SERTRALINE [Concomitant]
     Dates: start: 20070319
  10. ZOLPIDEM [Concomitant]
     Dates: start: 20070319

REACTIONS (3)
  - DISEASE PROGRESSION [None]
  - DRUG INEFFECTIVE [None]
  - PNEUMONIA [None]
